FAERS Safety Report 25995550 (Version 3)
Quarter: 2025Q4

REPORT INFORMATION
  Report Type: Report from Study
  Country: US (occurrence: US)
  Receive Date: 20251104
  Receipt Date: 20251118
  Transmission Date: 20260117
  Serious: Yes (Hospitalization, Other)
  Sender: ROCHE
  Company Number: US-ROCHE-3156156

PATIENT
  Age: 67 Year
  Sex: Male
  Weight: 104.33 kg

DRUGS (47)
  1. XOLAIR [Suspect]
     Active Substance: OMALIZUMAB
     Indication: Asthma
     Route: 058
  2. XOLAIR [Suspect]
     Active Substance: OMALIZUMAB
  3. XOLAIR [Suspect]
     Active Substance: OMALIZUMAB
     Indication: Asthma
     Route: 058
     Dates: start: 2007, end: 2008
  4. XOLAIR [Suspect]
     Active Substance: OMALIZUMAB
     Indication: Asthma
     Dosage: 150 MG IN EACH ARM EVERY 10 TO 14 DAYS
     Route: 058
     Dates: start: 2008
  5. XOLAIR [Suspect]
     Active Substance: OMALIZUMAB
     Dosage: EVERY 10 TO 14 DAYS.
     Route: 058
  6. XOLAIR [Suspect]
     Active Substance: OMALIZUMAB
     Dosage: EVERY 10-14 DAYS; DOSE 150 MG
     Route: 058
     Dates: start: 20250416
  7. METFORMIN HYDROCHLORIDE [Suspect]
     Active Substance: METFORMIN HYDROCHLORIDE
     Indication: Diabetes mellitus
     Route: 065
     Dates: start: 2006
  8. QVAR [Suspect]
     Active Substance: BECLOMETHASONE DIPROPIONATE
     Indication: Product used for unknown indication
     Route: 065
  9. SEREVENT DISKUS [Suspect]
     Active Substance: SALMETEROL XINAFOATE
     Indication: Product used for unknown indication
     Route: 065
  10. PREDNISONE [Suspect]
     Active Substance: PREDNISONE
     Indication: Product used for unknown indication
     Route: 065
  11. INSULIN GLARGINE [Concomitant]
     Active Substance: INSULIN GLARGINE
     Route: 042
     Dates: start: 20220811
  12. QVAR REDIHALER [Concomitant]
     Active Substance: BECLOMETHASONE DIPROPIONATE
     Dates: start: 20220722
  13. ALBUTEROL [Concomitant]
     Active Substance: ALBUTEROL
     Dosage: 2 PUFFS IN LUNGS IN EVERY 4 HOURS.
  14. TESTOSTERONE CYPIONATE [Concomitant]
     Active Substance: TESTOSTERONE CYPIONATE
     Dosage: AS DIRECTED.
     Route: 042
  15. NASACORT [Concomitant]
     Active Substance: TRIAMCINOLONE ACETONIDE
  16. VIAGRA [Concomitant]
     Active Substance: SILDENAFIL CITRATE
     Dosage: AS NEEDED FOR ERECTILE DYSFUNCTION.
     Route: 048
  17. LEVITRA [Concomitant]
     Active Substance: VARDENAFIL HYDROCHLORIDE
     Dosage: AS NEEDED FOR ERECTILE DYSFUNCTION
     Route: 048
     Dates: start: 20190226
  18. TRILEPTAL [Concomitant]
     Active Substance: OXCARBAZEPINE
     Route: 048
     Dates: start: 20170824
  19. EPIPEN [Concomitant]
     Active Substance: EPINEPHRINE
     Dosage: AS NEEDED.
     Route: 030
  20. DELTASONE [Concomitant]
     Active Substance: PREDNISONE
     Dosage: AS NEEDED.
     Route: 048
     Dates: start: 20220516
  21. SOMA [Concomitant]
     Active Substance: CARISOPRODOL
     Route: 048
     Dates: start: 20200507
  22. AMMONIUM LACTATE [Concomitant]
     Active Substance: AMMONIUM LACTATE
     Dosage: APPLY TO BOTH FEET 2 TIMES A DAY
     Route: 061
  23. SALMETEROL [Concomitant]
     Active Substance: SALMETEROL
  24. EPINEPHRINE [Concomitant]
     Active Substance: EPINEPHRINE
  25. PREDNISOLONE [Concomitant]
     Active Substance: PREDNISOLONE
  26. SOMA [Concomitant]
     Active Substance: CARISOPRODOL
  27. DOXYCYCLINE HYCLATE [Concomitant]
     Active Substance: DOXYCYCLINE HYCLATE
  28. VANCOMYCIN [Concomitant]
     Active Substance: VANCOMYCIN
  29. ANASTROZOLE [Concomitant]
     Active Substance: ANASTROZOLE
  30. ANDROGEL [Concomitant]
     Active Substance: TESTOSTERONE
  31. ASMANEX [Concomitant]
     Active Substance: MOMETASONE FUROATE
  32. BACTRIM [Concomitant]
     Active Substance: SULFAMETHOXAZOLE\TRIMETHOPRIM
  33. CIALIS [Concomitant]
     Active Substance: TADALAFIL
  34. LISINOPRIL [Concomitant]
     Active Substance: LISINOPRIL
  35. METFORMIN [Concomitant]
     Active Substance: METFORMIN HYDROCHLORIDE
  36. SITAGLIPTIN [Concomitant]
     Active Substance: SITAGLIPTIN
  37. TRIMETHOPRIM [Concomitant]
     Active Substance: TRIMETHOPRIM
  38. INSULIN GLARGINE [Concomitant]
     Active Substance: INSULIN GLARGINE
  39. BECLOMETHASONE DIPROPIONATE [Concomitant]
     Active Substance: BECLOMETHASONE DIPROPIONATE
  40. NASACORT [Concomitant]
     Active Substance: TRIAMCINOLONE ACETONIDE
  41. VIAGRA [Concomitant]
     Active Substance: SILDENAFIL CITRATE
  42. EPINEPHRINE [Concomitant]
     Active Substance: EPINEPHRINE
  43. OXCARBAZEPINE [Concomitant]
     Active Substance: OXCARBAZEPINE
  44. BUDESONIDE [Concomitant]
     Active Substance: BUDESONIDE
  45. ASPIRIN [Concomitant]
     Active Substance: ASPIRIN
  46. IMDUR [Concomitant]
     Active Substance: ISOSORBIDE MONONITRATE
  47. MOBIC [Concomitant]
     Active Substance: MELOXICAM

REACTIONS (34)
  - COVID-19 [Not Recovered/Not Resolved]
  - Memory impairment [Not Recovered/Not Resolved]
  - Off label use [Unknown]
  - Skin burning sensation [Not Recovered/Not Resolved]
  - Myalgia [Not Recovered/Not Resolved]
  - Fatigue [Not Recovered/Not Resolved]
  - Depressed level of consciousness [Not Recovered/Not Resolved]
  - Eye disorder [Not Recovered/Not Resolved]
  - Insomnia [Not Recovered/Not Resolved]
  - Feeling abnormal [Unknown]
  - Intercepted product storage error [Unknown]
  - Decreased immune responsiveness [Unknown]
  - Asthma [Not Recovered/Not Resolved]
  - Overdose [Unknown]
  - Brain fog [Not Recovered/Not Resolved]
  - Sleep disorder [Not Recovered/Not Resolved]
  - Reading disorder [Not Recovered/Not Resolved]
  - Total lung capacity decreased [Not Recovered/Not Resolved]
  - Eye swelling [Not Recovered/Not Resolved]
  - Swelling [Not Recovered/Not Resolved]
  - Dyspnoea [Unknown]
  - Weight increased [Not Recovered/Not Resolved]
  - Chest pain [Recovered/Resolved]
  - Acute myocardial infarction [Recovered/Resolved]
  - Hypoaesthesia [Not Recovered/Not Resolved]
  - Gait disturbance [Recovered/Resolved]
  - Blood testosterone decreased [Recovered/Resolved]
  - Post-acute COVID-19 syndrome [Unknown]
  - Immune system disorder [Unknown]
  - Asthenia [Unknown]
  - COVID-19 pneumonia [Unknown]
  - Somnolence [Unknown]
  - Impaired work ability [Not Recovered/Not Resolved]
  - Food allergy [Unknown]

NARRATIVE: CASE EVENT DATE: 20200101
